FAERS Safety Report 8625272 (Version 3)
Quarter: 2013Q1

REPORT INFORMATION
  Report Type: Spontaneous
  Country: US (occurrence: US)
  Receive Date: 20120620
  Receipt Date: 20130227
  Transmission Date: 20140127
  Serious: Yes (Hospitalization)
  Sender: FDA-Public Use
  Company Number: US-ELI_LILLY_AND_COMPANY-US201206003837

PATIENT
  Sex: Female

DRUGS (12)
  1. FORTEO [Suspect]
     Indication: OSTEOPOROSIS
     Dosage: 20 UG, QD
     Route: 058
     Dates: start: 20120418
  2. FORTEO [Suspect]
     Dosage: 20 UG, QD
     Dates: start: 201204
  3. FORTEO [Suspect]
     Dosage: 20 UG, QD
     Dates: start: 201204
  4. FORTEO [Suspect]
     Dosage: 20 UG, QD
     Route: 058
     Dates: start: 20120418
  5. FORTEO [Suspect]
     Dosage: 20 UG, QD
     Route: 058
     Dates: start: 20120418
  6. MEDROL [Concomitant]
     Dosage: UNK, QD
  7. METOPROLOL [Concomitant]
     Dosage: UNK, QD
  8. DIOVAN [Concomitant]
     Dosage: UNK, QD
  9. LEVOTHYROXINE [Concomitant]
     Dosage: UNK, QD
  10. AMLODIPINE [Concomitant]
     Dosage: UNK, QD
  11. PRAVASTATIN [Concomitant]
     Dosage: UNK, QD
  12. OMEPRAZOLE [Concomitant]
     Dosage: UNK, QD

REACTIONS (3)
  - Blood sodium increased [Recovered/Resolved]
  - Inappropriate antidiuretic hormone secretion [Recovered/Resolved]
  - Urinary tract infection [Recovered/Resolved]
